FAERS Safety Report 7091076-4 (Version None)
Quarter: 2010Q4

REPORT INFORMATION
  Report Type: 
  Country: None (occurrence: None)
  Receive Date: 20101109
  Receipt Date: 20101028
  Transmission Date: 20110411
  Serious: Yes (Other)
  Sender: FDA-Public Use
  Company Number: PHHY2010BR73296

PATIENT
  Sex: Female

DRUGS (2)
  1. DIOVAN [Suspect]
     Indication: BLOOD PRESSURE
     Dosage: ONE TABLET IN THE MORNING
     Route: 048
  2. CAPTOPRIL [Concomitant]
     Dosage: 25 MG 2 TABLETS IN A SINGLE DOSE TWICE A DAY (MORNING AND NIGHT)
     Dates: start: 20070101

REACTIONS (5)
  - BLOOD CHOLESTEROL INCREASED [None]
  - DIABETES MELLITUS [None]
  - HYPERGLYCAEMIA [None]
  - HYPERTENSION [None]
  - STRESS [None]
